FAERS Safety Report 6147533-8 (Version None)
Quarter: 2009Q2

REPORT INFORMATION
  Report Type: 
  Country: None (occurrence: None)
  Receive Date: 20090408
  Receipt Date: 20090212
  Transmission Date: 20091009
  Serious: No
  Sender: FDA-Public Use
  Company Number: US-BAYER-200910591BCC

PATIENT
  Age: 88 Year
  Sex: Female
  Weight: 73 kg

DRUGS (9)
  1. ALEVE [Suspect]
     Indication: OSTEOPOROSIS
     Dosage: TOTAL DAILY DOSE: 440 MG  UNIT DOSE: 220 MG
     Route: 048
     Dates: start: 20090207
  2. TRAMADOL HCL [Concomitant]
  3. PLAVIX [Concomitant]
  4. GABAPENTIN [Concomitant]
  5. LISINOPRIL [Concomitant]
  6. CVS ASPIRIN [Concomitant]
  7. SYNTHROID [Concomitant]
  8. LIPITOR [Concomitant]
  9. VITAMIN D [Concomitant]

REACTIONS (1)
  - INSOMNIA [None]
